FAERS Safety Report 9563702 (Version 1)
Quarter: 2013Q3

REPORT INFORMATION
  Report Type: Spontaneous
  Country: US (occurrence: None)
  Receive Date: 20130920
  Receipt Date: 20130920
  Transmission Date: 20140515
  Serious: Yes (Other)
  Sender: FDA-Public Use
  Company Number: 54973 AE # 1504

PATIENT
  Age: 80 Year
  Sex: Female

DRUGS (4)
  1. HYLAND^S LEG CRAMPS CAPLETS [Suspect]
     Indication: MUSCLE SPASMS
     Dosage: 2 CAPS BY MOUTH AM + PM
     Route: 048
  2. GABAPENTIN [Concomitant]
  3. LUTEIN [Concomitant]
  4. ASPIRIN [Concomitant]

REACTIONS (7)
  - Headache [None]
  - Feeling abnormal [None]
  - Visual acuity reduced [None]
  - Mental impairment [None]
  - Apparent death [None]
  - Abdominal discomfort [None]
  - Blood pressure increased [None]
